FAERS Safety Report 16346971 (Version 1)
Quarter: 2019Q2

REPORT INFORMATION
  Report Type: Spontaneous
  Country: ES (occurrence: ES)
  Receive Date: 20190523
  Receipt Date: 20190523
  Transmission Date: 20190711
  Serious: Yes (Hospitalization, Other)
  Sender: FDA-Public Use
  Company Number: ES-AUROBINDO-AUR-APL-2019-026837

PATIENT

DRUGS (1)
  1. CAPECITABINE. [Suspect]
     Active Substance: CAPECITABINE
     Indication: COLON CANCER STAGE III
     Dosage: UNK UNK,2 CYCLICAL
     Route: 065

REACTIONS (7)
  - Hypoalbuminaemia [Unknown]
  - Leukopenia [Unknown]
  - Toxicity to various agents [Unknown]
  - Coagulopathy [Unknown]
  - Enteritis [Unknown]
  - Proctalgia [Unknown]
  - Hypocalcaemia [Unknown]
